FAERS Safety Report 4327988-1 (Version None)
Quarter: 2004Q1

REPORT INFORMATION
  Report Type: 
  Country: None (occurrence: None)
  Receive Date: 20040325
  Receipt Date: 20030630
  Transmission Date: 20041129
  Serious: Yes (Other)
  Sender: FDA-Public Use
  Company Number: KII-2003-0008248

PATIENT
  Age: 24 Year
  Sex: Female

DRUGS (6)
  1. OXYCONTIN [Suspect]
     Indication: DRUG USE FOR UNKNOWN INDICATION
  2. OXYCODONE HCL [Suspect]
     Indication: DRUG USE FOR UNKNOWN INDICATION
  3. HYDROCODONE BITARTRATE [Suspect]
     Indication: DRUG USE FOR UNKNOWN INDICATION
  4. HYDROMORPHONE (HHCL (SIMILAR TO IND 38,424) (HYDROMORPHONE HYDROCHLORI [Suspect]
     Indication: DRUG USE FOR UNKNOWN INDICATION
  5. MORPHINE SULFATE [Suspect]
     Indication: DRUG USE FOR UNKNOWN INDICATION
  6. FENTANYL [Suspect]
     Indication: DRUG USE FOR UNKNOWN INDICATION

REACTIONS (5)
  - COMPLICATIONS OF MATERNAL EXPOSURE TO THERAPEUTIC DRUGS [None]
  - DRUG ABUSER [None]
  - MATERNAL DRUGS AFFECTING FOETUS [None]
  - POLYSUBSTANCE ABUSE [None]
  - PREGNANCY [None]
